FAERS Safety Report 16760373 (Version 3)
Quarter: 2019Q4

REPORT INFORMATION
  Report Type: Spontaneous
  Country: US (occurrence: US)
  Receive Date: 20190830
  Receipt Date: 20191107
  Transmission Date: 20200122
  Serious: No
  Sender: FDA-Public Use
  Company Number: US-BEH-2019105912

PATIENT
  Age: 65 Year
  Sex: Female

DRUGS (14)
  1. HIZENTRA [Suspect]
     Active Substance: HUMAN IMMUNOGLOBULIN G
     Dosage: 13 GRAM, QW
     Route: 058
     Dates: start: 2019
  2. LIPITOR [Concomitant]
     Active Substance: ATORVASTATIN CALCIUM
  3. SYNTHROID [Concomitant]
     Active Substance: LEVOTHYROXINE SODIUM
  4. CALCIUM + D3 [CALCIUM;COLECALCIFEROL] [Concomitant]
  5. INCRUSE ELLIPTA [Concomitant]
     Active Substance: UMECLIDINIUM BROMIDE
  6. PROAIR HFA [Concomitant]
     Active Substance: ALBUTEROL SULFATE
  7. HIZENTRA [Suspect]
     Active Substance: HUMAN IMMUNOGLOBULIN G
     Indication: IMMUNODEFICIENCY COMMON VARIABLE
     Dosage: 1 GRAM/5 ML
     Route: 058
  8. SINGULAIR [Concomitant]
     Active Substance: MONTELUKAST SODIUM
  9. THEOPHYLLINE [Concomitant]
     Active Substance: THEOPHYLLINE ANHYDROUS
  10. ZOLOFT [Concomitant]
     Active Substance: SERTRALINE HYDROCHLORIDE
  11. METFORMIN HCL [Concomitant]
     Active Substance: METFORMIN HYDROCHLORIDE
  12. HIZENTRA [Suspect]
     Active Substance: HUMAN IMMUNOGLOBULIN G
     Dosage: 13 GRAM, QW
     Route: 058
     Dates: start: 201907
  13. BREO ELLIPTA [Concomitant]
     Active Substance: FLUTICASONE FUROATE\VILANTEROL TRIFENATATE
  14. CHANTIX [Concomitant]
     Active Substance: VARENICLINE TARTRATE

REACTIONS (15)
  - Fatigue [Unknown]
  - Headache [Not Recovered/Not Resolved]
  - Sneezing [Not Recovered/Not Resolved]
  - Increased appetite [Unknown]
  - Nausea [Not Recovered/Not Resolved]
  - Body temperature decreased [Not Recovered/Not Resolved]
  - Weight increased [Unknown]
  - Vomiting [Not Recovered/Not Resolved]
  - Dehydration [Not Recovered/Not Resolved]
  - Nasopharyngitis [Not Recovered/Not Resolved]
  - Somnolence [Unknown]
  - Influenza [Not Recovered/Not Resolved]
  - Productive cough [Unknown]
  - Cough [Not Recovered/Not Resolved]
  - Viral infection [Unknown]

NARRATIVE: CASE EVENT DATE: 201910
